FAERS Safety Report 25846581 (Version 1)
Quarter: 2025Q3

REPORT INFORMATION
  Report Type: Spontaneous
  Country: US (occurrence: None)
  Receive Date: 20250924
  Receipt Date: 20250924
  Transmission Date: 20251020
  Serious: Yes (Death)
  Sender: FDA-CTU
  Company Number: None

PATIENT
  Age: 81 Year
  Sex: Male

DRUGS (1)
  1. VELTASSA [Suspect]
     Active Substance: PATIROMER
     Indication: Hyperkalaemia
     Dosage: OTHER QUANTITY : 1 PACKET (8.4GRAMS);?FREQUENCY : EVERY OTHER DAY;?
     Route: 048
     Dates: start: 20240429, end: 20250820

REACTIONS (1)
  - Death [None]

NARRATIVE: CASE EVENT DATE: 20250821
